FAERS Safety Report 9206092 (Version 1)
Quarter: 2013Q2

REPORT INFORMATION
  Report Type: Spontaneous
  Country: US (occurrence: US)
  Receive Date: 20130403
  Receipt Date: 20130403
  Transmission Date: 20140414
  Serious: Yes (Hospitalization, Other)
  Sender: FDA-Public Use
  Company Number: US-AMGEN-USASP2013022548

PATIENT
  Age: 70 Year
  Sex: Female

DRUGS (6)
  1. PROLIA [Suspect]
     Indication: OSTEOPENIA
  2. THYROID [Concomitant]
  3. CALCIUM [Concomitant]
  4. MULTIVITAMIN                       /00097801/ [Concomitant]
  5. FISH OIL [Concomitant]
  6. ESTROVEN [Concomitant]

REACTIONS (1)
  - Spinal fusion surgery [Recovering/Resolving]
